FAERS Safety Report 20066951 (Version 5)
Quarter: 2022Q3

REPORT INFORMATION
  Report Type: Report from Study
  Country: US (occurrence: None)
  Receive Date: 20211115
  Receipt Date: 20220929
  Transmission Date: 20221026
  Serious: Yes (Other)
  Sender: FDA-Public Use
  Company Number: US-ROCHE-2885264

PATIENT
  Age: 54 Year
  Sex: Female
  Weight: 156 kg

DRUGS (29)
  1. RANIBIZUMAB [Suspect]
     Active Substance: RANIBIZUMAB
     Indication: Diabetic retinal oedema
     Dosage: DOSE OF STUDY DRUG FIRST ADMINISTERED: 10 MG/ML., FREQUENCY Q24W?DATE OF MOST RECENT DOSE OF STUDY D
     Route: 050
     Dates: start: 20201013
  2. RANIBIZUMAB [Suspect]
     Active Substance: RANIBIZUMAB
  3. RANIBIZUMAB [Suspect]
     Active Substance: RANIBIZUMAB
  4. RANIBIZUMAB [Suspect]
     Active Substance: RANIBIZUMAB
  5. RANIBIZUMAB [Suspect]
     Active Substance: RANIBIZUMAB
  6. RANIBIZUMAB [Concomitant]
     Active Substance: RANIBIZUMAB
     Dosage: DRUG DOSE FIRST ADMINISTERED IS 6 MG/ML DOSE LAST STUDY DRUG ADMIN PRIOR AE IS MG/ML,28/MAY/2021, FR
     Route: 050
     Dates: start: 20201104
  7. NOVOLOG [Concomitant]
     Active Substance: INSULIN ASPART
     Indication: Type 2 diabetes mellitus
     Dosage: 5 U
     Route: 058
     Dates: start: 2016
  8. TRESIBA [Concomitant]
     Active Substance: INSULIN DEGLUDEC
     Indication: Type 2 diabetes mellitus
     Dosage: 8 U
     Route: 058
     Dates: start: 2016
  9. ISOSORBIDE MONONITRATE [Concomitant]
     Active Substance: ISOSORBIDE MONONITRATE
     Indication: Angina pectoris
     Dosage: 60 MG/ML
     Route: 048
     Dates: start: 2016
  10. CARVEDILOL [Concomitant]
     Active Substance: CARVEDILOL
     Indication: Hypertension
     Dosage: 25 MG/ML
     Route: 048
     Dates: start: 2017
  11. ATORVASTATIN [Concomitant]
     Active Substance: ATORVASTATIN
     Indication: Hypertension
     Dosage: 20 MG/ML
     Route: 048
     Dates: start: 2016
  12. TYLENOL [Concomitant]
     Active Substance: ACETAMINOPHEN
     Route: 048
  13. ALLOPURINOL [Concomitant]
     Active Substance: ALLOPURINOL
     Indication: Blood uric acid increased
     Dosage: 100 MG/ML
     Route: 048
     Dates: start: 20201221
  14. AMLODIPINE BESYLATE [Concomitant]
     Active Substance: AMLODIPINE BESYLATE
     Indication: Hypertension
     Dosage: 10 MG/ML
     Route: 048
     Dates: start: 20210302
  15. IRON [Concomitant]
     Active Substance: IRON
     Indication: Prophylaxis
     Route: 048
     Dates: start: 202006
  16. CALCIUM [Concomitant]
     Active Substance: CALCIUM
     Indication: Tension headache
     Dosage: 325 MG/ML
     Dates: start: 2020
  17. PREDNISOLONE ACETATE [Concomitant]
     Active Substance: PREDNISOLONE ACETATE
     Indication: Eye inflammation
     Route: 047
     Dates: start: 20210802, end: 20210905
  18. PREDNISOLONE ACETATE [Concomitant]
     Active Substance: PREDNISOLONE ACETATE
     Indication: Eye pain
     Route: 047
     Dates: start: 20210906, end: 20210913
  19. PREDNISOLONE ACETATE [Concomitant]
     Active Substance: PREDNISOLONE ACETATE
     Route: 047
     Dates: start: 20210925, end: 20210928
  20. PREDNISOLONE ACETATE [Concomitant]
     Active Substance: PREDNISOLONE ACETATE
     Dosage: OTHER
     Route: 047
     Dates: start: 20210928, end: 20210930
  21. PREDNISOLONE ACETATE [Concomitant]
     Active Substance: PREDNISOLONE ACETATE
     Route: 047
     Dates: start: 20210930, end: 20211028
  22. MOXIFLOXACIN [Concomitant]
     Active Substance: MOXIFLOXACIN
     Indication: Prophylaxis
     Route: 047
     Dates: start: 20210909, end: 20210924
  23. MOXIFLOXACIN [Concomitant]
     Active Substance: MOXIFLOXACIN
     Route: 047
     Dates: start: 20210925, end: 20211012
  24. CYCLOPENTOLATE [Concomitant]
     Active Substance: CYCLOPENTOLATE
     Indication: Anterior chamber cell
     Route: 047
     Dates: start: 20210925, end: 20210928
  25. CYCLOPENTOLATE [Concomitant]
     Active Substance: CYCLOPENTOLATE
     Indication: Eye inflammation
     Dosage: OTHER
     Route: 047
     Dates: start: 20210928, end: 20211015
  26. MAXITROL [Concomitant]
     Active Substance: DEXAMETHASONE\NEOMYCIN SULFATE\POLYMYXIN B SULFATE
     Route: 047
     Dates: start: 20210925, end: 20210928
  27. ATROPINE OPHTHALMIC [Concomitant]
     Indication: Prophylaxis
     Dates: start: 20210924, end: 20210924
  28. VIGAMOX [Concomitant]
     Active Substance: MOXIFLOXACIN HYDROCHLORIDE
     Route: 047
     Dates: start: 20210924, end: 20210924
  29. ERYTHROMYCIN [Concomitant]
     Active Substance: ERYTHROMYCIN
     Indication: Eye infection
     Route: 047
     Dates: start: 20210928

REACTIONS (2)
  - Conjunctival erosion [Recovered/Resolved]
  - Conjunctival retraction [Recovered/Resolved]

NARRATIVE: CASE EVENT DATE: 20210909
